FAERS Safety Report 17875626 (Version 1)
Quarter: 2020Q2

REPORT INFORMATION
  Report Type: Spontaneous
  Country: GB (occurrence: GB)
  Receive Date: 20200609
  Receipt Date: 20200609
  Transmission Date: 20200714
  Serious: Yes (Other)
  Sender: FDA-Public Use
  Company Number: GB-TEVA-2020-GB-1246724

PATIENT
  Sex: Male

DRUGS (2)
  1. EMTRICITABINE/TENOFOVIR [Suspect]
     Active Substance: EMTRICITABINE\TENOFOVIR
     Dosage: 200MG/245MG
  2. NEVIRAPINE. [Suspect]
     Active Substance: NEVIRAPINE
     Dosage: 400 MILLIGRAM DAILY;

REACTIONS (3)
  - Anosmia [Unknown]
  - COVID-19 [Unknown]
  - Ageusia [Unknown]
